FAERS Safety Report 26138039 (Version 2)
Quarter: 2025Q4

REPORT INFORMATION
  Report Type: Spontaneous
  Country: US (occurrence: US)
  Receive Date: 20251210
  Receipt Date: 20251231
  Transmission Date: 20260117
  Serious: No
  Sender: TOLMAR
  Company Number: US-Tolmar-TLM-2025-09119

PATIENT

DRUGS (3)
  1. ELIGARD [Suspect]
     Active Substance: LEUPROLIDE ACETATE
     Indication: Prostate cancer
     Dosage: DOSE NOT ADMINISTERED?GTIN: 00362935227106?SERIAL NUMBER: 5822385575668?SYRINGE A: LOT NUMBER: 15187
  2. ELIGARD [Suspect]
     Active Substance: LEUPROLIDE ACETATE
     Dosage: REPLACEMENT DOSE GIVEN
  3. DEVICE [Suspect]
     Active Substance: DEVICE
     Indication: Prostate cancer
     Dosage: DOSE NOT ADMINISTERED?GTIN: 00362935227106?SERIAL NUMBER: 5822385575668?SYRINGE A: LOT NUMBER: 15187

REACTIONS (3)
  - Intercepted product preparation error [Unknown]
  - Product preparation error [Unknown]
  - Product packaging quantity issue [Unknown]
